FAERS Safety Report 11254547 (Version 1)
Quarter: 2015Q3

REPORT INFORMATION
  Report Type: Spontaneous
  Country: US (occurrence: None)
  Receive Date: 20150708
  Receipt Date: 20150708
  Transmission Date: 20151125
  Serious: No
  Sender: FDA-Public Use
  Company Number: None

PATIENT
  Age: 20 Year
  Sex: Female
  Weight: 55.79 kg

DRUGS (1)
  1. MAKENA [Suspect]
     Active Substance: HYDROXYPROGESTERONE CAPROATE
     Indication: PREMATURE LABOUR
     Dosage: MAKENA INJECTION  WEEKLY  INTO THE MUSCLE
     Route: 030

REACTIONS (7)
  - Injection site pruritus [None]
  - Injection site reaction [None]
  - Injection site erythema [None]
  - Injection site pain [None]
  - Injection site swelling [None]
  - Injection site warmth [None]
  - Injection site urticaria [None]

NARRATIVE: CASE EVENT DATE: 20150706
